FAERS Safety Report 14200348 (Version 2)
Quarter: 2017Q4

REPORT INFORMATION
  Report Type: Spontaneous
  Country: JP (occurrence: JP)
  Receive Date: 20171117
  Receipt Date: 20171215
  Transmission Date: 20180321
  Serious: No
  Sender: FDA-Public Use
  Company Number: JP-BAUSCH-BL-2017-031594

PATIENT
  Age: 50 Year
  Sex: Female

DRUGS (4)
  1. TALION [Suspect]
     Active Substance: BEPOTASTINE
     Route: 065
     Dates: start: 20170306
  2. TALION [Suspect]
     Active Substance: BEPOTASTINE
     Indication: SEASONAL ALLERGY
     Route: 048
     Dates: start: 20170106
  3. PATANOL [Suspect]
     Active Substance: OLOPATADINE HYDROCHLORIDE
     Indication: SEASONAL ALLERGY
     Route: 047
     Dates: start: 20170106
  4. TALION [Suspect]
     Active Substance: BEPOTASTINE
     Route: 065
     Dates: start: 20170206

REACTIONS (1)
  - Alopecia universalis [Unknown]

NARRATIVE: CASE EVENT DATE: 201702
